FAERS Safety Report 23734782 (Version 1)
Quarter: 2024Q2

REPORT INFORMATION
  Report Type: Report from Study
  Country: US (occurrence: US)
  Receive Date: 20240412
  Receipt Date: 20240412
  Transmission Date: 20240716
  Serious: Yes (Other)
  Sender: FDA-Public Use
  Company Number: US-MLMSERVICE-20240322-4897111-1

PATIENT
  Age: 44 Year
  Sex: Male

DRUGS (7)
  1. AMPHOTERICIN B [Suspect]
     Active Substance: AMPHOTERICIN B
     Indication: Meningitis fungal
     Dosage: 0.125-0.25 MG SLOW TITRATION EVERY 48 H AND UP TO A 2 MG MAXIMUM DAILY DOSE
     Route: 037
  2. AMPHOTERICIN B [Suspect]
     Active Substance: AMPHOTERICIN B
     Dosage: UNK
     Route: 042
  3. AMPHOTERICIN B [Suspect]
     Active Substance: AMPHOTERICIN B
     Dosage: 1.75 MILLIGRAM (IT-LAMB FREQUENCY WAS CHANGED TO MONDAY/ WEDNESDAY/FRIDAY WITH CONTINUED TITRATION U
     Route: 065
  4. AMPHOTERICIN B [Suspect]
     Active Substance: AMPHOTERICIN B
     Dosage: 1 MILLIGRAM (SUBSEQUENTLY TRANSITIONED TO 1 MG BIWEEKLY ADMINISTRATION WITH SYMPTOM RESOLUTION)
     Route: 065
  5. FLUCONAZOLE [Suspect]
     Active Substance: FLUCONAZOLE
     Indication: Meningitis coccidioides
     Dosage: UNK DOSE-ESCALATE
     Route: 065
  6. POSACONAZOLE [Concomitant]
     Active Substance: POSACONAZOLE
     Indication: Product used for unknown indication
     Dosage: 300 MILLIGRAM, DAILY
  7. POSACONAZOLE [Concomitant]
     Active Substance: POSACONAZOLE
     Dosage: 300 MILLIGRAM, TWO TIMES A DAY

REACTIONS (3)
  - Acute kidney injury [Unknown]
  - Hepatic failure [Unknown]
  - Headache [Recovered/Resolved]
